FAERS Safety Report 18513341 (Version 1)
Quarter: 2020Q4

REPORT INFORMATION
  Report Type: Spontaneous
  Country: ES (occurrence: ES)
  Receive Date: 20201117
  Receipt Date: 20201117
  Transmission Date: 20210114
  Serious: Yes (Other)
  Sender: FDA-Public Use
  Company Number: ES-US-PROVELL PHARMACEUTICALS LLC-9179308

PATIENT
  Age: 46 Year
  Sex: Female
  Weight: 65 kg

DRUGS (1)
  1. EUTIROX [Suspect]
     Active Substance: LEVOTHYROXINE SODIUM
     Indication: HYPOTHYROIDISM
     Dosage: 100 TABLETS
     Route: 048
     Dates: start: 20200512

REACTIONS (3)
  - Gastritis [Recovering/Resolving]
  - Reaction to excipient [Unknown]
  - Product formulation issue [Recovering/Resolving]

NARRATIVE: CASE EVENT DATE: 202005
